FAERS Safety Report 20651007 (Version 2)
Quarter: 2022Q2

REPORT INFORMATION
  Report Type: Report from Study
  Country: US (occurrence: US)
  Receive Date: 20220329
  Receipt Date: 20220516
  Transmission Date: 20220721
  Serious: No
  Sender: FDA-Public Use
  Company Number: US-BRISTOL-MYERS SQUIBB COMPANY-2022-011714

PATIENT
  Age: 54 Year
  Sex: Female

DRUGS (2)
  1. ORENCIA [Suspect]
     Active Substance: ABATACEPT
     Indication: Rheumatoid arthritis
     Route: 058
     Dates: start: 20220109
  2. ORENCIA [Suspect]
     Active Substance: ABATACEPT
     Route: 058
     Dates: start: 20220111

REACTIONS (9)
  - Pain in extremity [Unknown]
  - Rheumatoid arthritis [Unknown]
  - Myalgia [Unknown]
  - Neuralgia [Unknown]
  - Abdominal discomfort [Unknown]
  - Sinusitis [Unknown]
  - Arthralgia [Unknown]
  - Malaise [Unknown]
  - Adverse event [Unknown]
